FAERS Safety Report 6545061-9 (Version None)
Quarter: 2010Q1

REPORT INFORMATION
  Report Type: 
  Country: None (occurrence: None)
  Receive Date: 20100121
  Receipt Date: 20100118
  Transmission Date: 20100710
  Serious: Yes (Other)
  Sender: FDA-Public Use
  Company Number: D0063192A

PATIENT

DRUGS (10)
  1. REQUIP [Suspect]
     Indication: PARKINSON'S DISEASE
     Dosage: 22MG PER DAY
     Route: 048
  2. MADOPAR [Concomitant]
     Route: 048
  3. ISICOM [Concomitant]
     Dosage: 100MG UNKNOWN
     Route: 048
  4. CARBIDOPA-LEVODOPA [Concomitant]
     Dosage: 200MG UNKNOWN
     Route: 048
  5. NACOM [Concomitant]
     Dosage: 100MG PER DAY
     Route: 048
  6. PK-MERZ [Concomitant]
     Dosage: 150MG UNKNOWN
     Route: 048
  7. AZILECT [Concomitant]
     Dosage: 1MG PER DAY
     Route: 048
  8. TRAZODONE [Concomitant]
     Route: 048
  9. DOMPERIDON [Concomitant]
     Dosage: 10MG UNKNOWN
     Route: 048
  10. NEUPRO [Concomitant]
     Dosage: 8MG PER DAY
     Route: 061

REACTIONS (7)
  - ANOSMIA [None]
  - DRUG ADMINISTRATION ERROR [None]
  - FEELING ABNORMAL [None]
  - HYPOGEUSIA [None]
  - MUSCLE SPASMS [None]
  - ON AND OFF PHENOMENON [None]
  - SPEECH DISORDER [None]
